FAERS Safety Report 8374551-1 (Version None)
Quarter: 2012Q2

REPORT INFORMATION
  Report Type: 
  Country: None (occurrence: None)
  Receive Date: 20120521
  Receipt Date: 20120417
  Transmission Date: 20120825
  Serious: No
  Sender: FDA-Public Use
  Company Number: US-ASTRAZENECA-2010SE24043

PATIENT
  Age: 56 Year
  Sex: Male
  Weight: 79.4 kg

DRUGS (12)
  1. SEROQUEL [Suspect]
     Route: 048
  2. SEROQUEL [Suspect]
     Route: 048
  3. SEROQUEL [Suspect]
     Route: 048
     Dates: start: 20090623
  4. NORTRIPTYLINE HCL [Concomitant]
     Indication: ANTIDEPRESSANT THERAPY
  5. ELAVIL [Concomitant]
  6. SEROQUEL [Suspect]
     Route: 048
  7. SEDATIVE PILL [Concomitant]
  8. TRILEPTAL [Concomitant]
     Indication: ILL-DEFINED DISORDER
  9. ATIVAN [Concomitant]
  10. SULINDAC [Concomitant]
     Indication: ARTHRITIS
  11. SEROQUEL [Suspect]
     Indication: BIPOLAR DISORDER
     Route: 048
     Dates: start: 20040101, end: 20090301
  12. TRILEPTAL [Concomitant]

REACTIONS (12)
  - SLEEP DISORDER [None]
  - ANXIETY [None]
  - MALAISE [None]
  - INTENTIONAL DRUG MISUSE [None]
  - BALANCE DISORDER [None]
  - THERAPEUTIC RESPONSE UNEXPECTED [None]
  - ELEVATED MOOD [None]
  - DEPRESSION [None]
  - FEELING ABNORMAL [None]
  - ABASIA [None]
  - FATIGUE [None]
  - MUSCLE ENZYME INCREASED [None]
